FAERS Safety Report 19275518 (Version 1)
Quarter: 2021Q2

REPORT INFORMATION
  Report Type: Spontaneous
  Country: US (occurrence: US)
  Receive Date: 20210519
  Receipt Date: 20210519
  Transmission Date: 20210717
  Serious: Yes (Other)
  Sender: FDA-Public Use
  Company Number: US-PERRIGO-20US019010

PATIENT
  Age: 37 Year
  Sex: Female
  Weight: 90.25 kg

DRUGS (37)
  1. ESOMEPRAZOLE. [Suspect]
     Active Substance: ESOMEPRAZOLE MAGNESIUM
     Indication: DYSPEPSIA
     Dosage: 40 MG, UNKNOWN
     Route: 065
     Dates: start: 2013
  2. ESOMEPRAZOLE. [Suspect]
     Active Substance: ESOMEPRAZOLE MAGNESIUM
     Dosage: 40 MG, UNKNOWN
     Route: 065
     Dates: start: 2016
  3. ESOMEPRAZOLE. [Suspect]
     Active Substance: ESOMEPRAZOLE MAGNESIUM
     Dosage: 40 MG, UNKNOWN
     Route: 065
     Dates: start: 2018
  4. BENICAR HCT [Concomitant]
     Active Substance: HYDROCHLOROTHIAZIDE\OLMESARTAN MEDOXOMIL
     Indication: HYPERTENSION
     Dosage: 40/25 MG, UNKNOWN
     Route: 065
     Dates: start: 2011, end: 2013
  5. LOSARTAN AND HYDROCHLOROTHIAZIDE [Concomitant]
     Active Substance: HYDROCHLOROTHIAZIDE\LOSARTAN POTASSIUM
     Indication: HYPERTENSION
     Dosage: 100/25 MG, UNKNOWN
     Route: 065
     Dates: start: 2013
  6. FUROSEMIDE. [Concomitant]
     Active Substance: FUROSEMIDE
     Indication: DIURETIC THERAPY
     Dosage: 20 MG, UNKNOWN
     Route: 065
     Dates: start: 2013
  7. ZANTAC 75 [Concomitant]
     Active Substance: RANITIDINE HYDROCHLORIDE
     Indication: PRODUCT USED FOR UNKNOWN INDICATION
     Dosage: UNK
     Route: 065
  8. OMEPRAZOLE                         /00661202/ [Suspect]
     Active Substance: OMEPRAZOLE SODIUM
     Indication: DYSPEPSIA
     Dosage: 20 MG, UNKNOWN
     Route: 065
     Dates: start: 20100304, end: 2013
  9. MELOXICAM. [Concomitant]
     Active Substance: MELOXICAM
     Dosage: 7.5 MG, UNKNOWN
     Route: 065
     Dates: start: 2016
  10. VOLTAREN                           /00372303/ [Concomitant]
     Active Substance: DICLOFENAC DIETHYLAMINE
     Indication: ARTHRALGIA
     Dosage: UNK
     Route: 065
     Dates: start: 2013, end: 2015
  11. AMITRIPTYLINE HCL [Concomitant]
     Active Substance: AMITRIPTYLINE
     Indication: ANTIDEPRESSANT THERAPY
     Dosage: 10 MG, UNKNOWN
     Route: 065
     Dates: start: 2014, end: 2016
  12. PENICILLIN VK [Concomitant]
     Active Substance: PENICILLIN V POTASSIUM
     Indication: ANTIBIOTIC THERAPY
     Dosage: 500 MG, UNKNOWN
     Route: 065
     Dates: start: 2016
  13. NEOMYCIN AND POLYMYXIN B SULFATES AND HYDROCO [Concomitant]
     Active Substance: HYDROCORTISONE\NEOMYCIN SULFATE\POLYMYXIN B SULFATE
     Indication: EAR INFECTION
     Dosage: UNK
     Route: 065
     Dates: start: 2016
  14. PREVACID 24 HR [Suspect]
     Active Substance: LANSOPRAZOLE
     Indication: DYSPEPSIA
     Dosage: UNKNOWN, UNKNOWN
     Route: 065
     Dates: start: 200905, end: 2018
  15. NEXIUM [Suspect]
     Active Substance: ESOMEPRAZOLE MAGNESIUM
     Dosage: UNKNOWN, UNKNOWN
     Route: 065
     Dates: start: 200705, end: 2018
  16. MELOXICAM. [Concomitant]
     Active Substance: MELOXICAM
     Indication: ANTIINFLAMMATORY THERAPY
     Dosage: 7.5 MG, UNKNOWN
     Route: 065
     Dates: start: 2012, end: 2014
  17. DOXEPIN [Concomitant]
     Active Substance: DOXEPIN
     Indication: ANTIDEPRESSANT THERAPY
     Dosage: 10 MG, UNKNOWN
     Route: 065
     Dates: start: 2015, end: 2016
  18. PEPCID AC [Concomitant]
     Active Substance: FAMOTIDINE
     Indication: PRODUCT USED FOR UNKNOWN INDICATION
     Dosage: UNK
     Route: 065
  19. PRILOSEC [Suspect]
     Active Substance: OMEPRAZOLE MAGNESIUM
     Indication: DYSPEPSIA
     Dosage: 20 MG, UNKNOWN
     Route: 048
     Dates: start: 20100304, end: 2013
  20. PRILOSEC [Suspect]
     Active Substance: OMEPRAZOLE MAGNESIUM
     Dosage: 20 MG, UNKNOWN
     Route: 065
     Dates: start: 2013
  21. PANTOPRAZOLE                       /01263204/ [Suspect]
     Active Substance: PANTOPRAZOLE SODIUM
     Indication: DYSPEPSIA
     Dosage: 40 MG, UNKNOWN
     Route: 065
     Dates: start: 20130709, end: 2018
  22. DEXILANT [Suspect]
     Active Substance: DEXLANSOPRAZOLE
     Indication: DYSPEPSIA
     Dosage: 60 MG, UNKNOWN
     Route: 065
     Dates: start: 2014
  23. TRAMADOL HCL [Concomitant]
     Active Substance: TRAMADOL HYDROCHLORIDE
     Indication: PAIN
     Dosage: 50 MG, UNKNOWN
     Route: 065
     Dates: start: 2011, end: 2012
  24. WOMEN^S MULTI                      /08368101/ [Concomitant]
     Indication: SUPPLEMENTATION THERAPY
     Dosage: UNK
     Route: 065
     Dates: start: 2020
  25. AMOXICILLIN. [Concomitant]
     Active Substance: AMOXICILLIN
     Indication: ANTIBIOTIC THERAPY
     Dosage: 500 MG, UNKNOWN
     Route: 065
     Dates: start: 2011, end: 2016
  26. AMITRIPTYLINE HCL [Concomitant]
     Active Substance: AMITRIPTYLINE
     Indication: NEURALGIA
  27. CIMETIDINE [Concomitant]
     Active Substance: CIMETIDINE
     Indication: PRODUCT USED FOR UNKNOWN INDICATION
     Dosage: UNK
     Route: 065
  28. PREVACID [Suspect]
     Active Substance: LANSOPRAZOLE
     Indication: DYSPEPSIA
     Dosage: UNKNOWN, UNKNOWN
     Route: 065
     Dates: start: 2007, end: 200905
  29. SULFAMETHOXAZOLE AND TRIMETHOPRIM [Concomitant]
     Active Substance: SULFAMETHOXAZOLE\TRIMETHOPRIM
     Indication: ANTIBIOTIC THERAPY
     Dosage: UNK
     Route: 065
     Dates: start: 2012, end: 2015
  30. SILVER SULFADIAZINE. [Concomitant]
     Active Substance: SILVER SULFADIAZINE
     Indication: ANTIBIOTIC THERAPY
     Dosage: UNK
     Route: 061
     Dates: start: 2012
  31. AZITHROMYCIN ANHYDROUS. [Concomitant]
     Active Substance: AZITHROMYCIN ANHYDROUS
     Indication: ANTIBIOTIC THERAPY
     Dosage: 250 MG, UNKNOWN
     Route: 065
     Dates: start: 2014, end: 2016
  32. CELECOXIB. [Concomitant]
     Active Substance: CELECOXIB
     Indication: PAIN
     Dosage: 200 MG, UNKNOWN
     Route: 065
     Dates: start: 2015
  33. RANITIDINE. [Concomitant]
     Active Substance: RANITIDINE
     Indication: PRODUCT USED FOR UNKNOWN INDICATION
     Dosage: UNK
     Route: 065
  34. DOXEPIN [Concomitant]
     Active Substance: DOXEPIN
     Indication: NEURALGIA
  35. NEXIUM [Suspect]
     Active Substance: ESOMEPRAZOLE MAGNESIUM
     Indication: DYSPEPSIA
     Dosage: UNKNOWN, UNKNOWN
     Route: 048
     Dates: start: 2007, end: 2013
  36. LANSOPRAZOLE. [Suspect]
     Active Substance: LANSOPRAZOLE
     Indication: DYSPEPSIA
     Dosage: 30 MG, QD
     Route: 065
     Dates: start: 2019
  37. DICLOFENAC SODIUM. [Concomitant]
     Active Substance: DICLOFENAC SODIUM
     Indication: ARTHRALGIA
     Dosage: UNK
     Route: 065
     Dates: start: 2016

REACTIONS (7)
  - Renal failure [Unknown]
  - Renal injury [Unknown]
  - Depression [Unknown]
  - Stress [Not Recovered/Not Resolved]
  - Anxiety [Unknown]
  - Rebound acid hypersecretion [Not Recovered/Not Resolved]
  - Chronic kidney disease [Not Recovered/Not Resolved]

NARRATIVE: CASE EVENT DATE: 2010
